FAERS Safety Report 6093037-0 (Version None)
Quarter: 2009Q1

REPORT INFORMATION
  Report Type: 
  Country: None (occurrence: None)
  Receive Date: 20090224
  Receipt Date: 20090204
  Transmission Date: 20090719
  Serious: Yes (Life-Threatening, Hospitalization)
  Sender: FDA-Public Use
  Company Number: BAYER CASE ID: 200829411GPV

PATIENT
  Age: 49 Year
  Sex: Female

DRUGS (10)
  1. FLUDARABINE PHOSPHATE [Suspect]
     Indication: CHRONIC LYMPHOCYTIC LEUKAEMIA
     Dosage: 40MG/M2, ORAL; ORAL;
     Dates: start: 20080624, end: 20080924
  2. FLUDARABINE PHOSPHATE [Suspect]
     Indication: CHRONIC LYMPHOCYTIC LEUKAEMIA
     Dosage: 40MG/M2, ORAL; ORAL;
     Dates: start: 20080925, end: 20081106
  3. FLUDARABINE PHOSPHATE [Suspect]
     Indication: CHRONIC LYMPHOCYTIC LEUKAEMIA
     Dosage: 40MG/M2, ORAL; ORAL;
     Dates: start: 20081107
  4. CAMPATH [Suspect]
     Indication: CHRONIC LYMPHOCYTIC LEUKAEMIA
     Dosage: 30 MG, SUBCUTANEOUS
     Route: 058
     Dates: start: 20080624, end: 20080924
  5. ENDOXN (CYCLOPHOSPHAMIDE) [Suspect]
     Indication: CHRONIC LYMPHOCYTIC LEUKAEMIA
     Dosage: 250 MG/M2, ORAL, ORAL
     Route: 048
     Dates: start: 20080724, end: 20080924
  6. ENDOXN (CYCLOPHOSPHAMIDE) [Suspect]
     Indication: CHRONIC LYMPHOCYTIC LEUKAEMIA
     Dosage: 250 MG/M2, ORAL, ORAL
     Route: 048
     Dates: start: 20080924, end: 20081106
  7. ENDOXN (CYCLOPHOSPHAMIDE) [Suspect]
     Indication: CHRONIC LYMPHOCYTIC LEUKAEMIA
     Dosage: 250 MG/M2, ORAL, ORAL
     Route: 048
     Dates: start: 20081106
  8. VALACYCLOVIR HCL [Concomitant]
  9. COTRIMOXAZOLE [Concomitant]
  10. PRAVASTATIN [Concomitant]

REACTIONS (5)
  - ASTHENIA [None]
  - LEUKOPENIA [None]
  - LYMPHOPENIA [None]
  - MENINGITIS LISTERIA [None]
  - NEUTROPENIA [None]
